FAERS Safety Report 14612939 (Version 5)
Quarter: 2019Q2

REPORT INFORMATION
  Report Type: Spontaneous
  Country: US (occurrence: US)
  Receive Date: 20180308
  Receipt Date: 20190401
  Transmission Date: 20190711
  Serious: Yes (Hospitalization, Other)
  Sender: FDA-Public Use
  Company Number: US-SA-2017SA200875

PATIENT
  Age: 59 Year
  Sex: Male

DRUGS (2)
  1. AUBAGIO [Suspect]
     Active Substance: TERIFLUNOMIDE
     Dosage: 1 DF
     Route: 048
     Dates: start: 2018
  2. AUBAGIO [Suspect]
     Active Substance: TERIFLUNOMIDE
     Indication: MULTIPLE SCLEROSIS
     Dosage: 14 MG,QD
     Route: 048
     Dates: start: 20160611, end: 201802

REACTIONS (9)
  - Feeling abnormal [Not Recovered/Not Resolved]
  - Cholelithiasis [Unknown]
  - Paraesthesia [Not Recovered/Not Resolved]
  - Ill-defined disorder [Recovering/Resolving]
  - Hospitalisation [Unknown]
  - Cholecystitis infective [Unknown]
  - Back pain [Recovering/Resolving]
  - Unevaluable event [Unknown]
  - Multiple sclerosis [Not Recovered/Not Resolved]

NARRATIVE: CASE EVENT DATE: 2018
